FAERS Safety Report 9205026 (Version 4)
Quarter: 2014Q1

REPORT INFORMATION
  Report Type: Spontaneous
  Country: CA (occurrence: CA)
  Receive Date: 20130402
  Receipt Date: 20140131
  Transmission Date: 20141002
  Serious: Yes (Hospitalization, Other)
  Sender: FDA-Public Use
  Company Number: CA-ROCHE-1207870

PATIENT
  Age: 60 Year
  Sex: Female

DRUGS (5)
  1. XOLAIR [Suspect]
     Indication: ASTHMA
     Route: 058
     Dates: start: 20130131
  2. XOLAIR [Suspect]
     Route: 058
     Dates: end: 201303
  3. ADVAIR [Concomitant]
  4. VENTOLINE [Concomitant]
  5. ALVESCO [Concomitant]

REACTIONS (16)
  - Local swelling [Unknown]
  - Nasopharyngitis [Unknown]
  - Hypokinesia [Unknown]
  - Hypoaesthesia [Unknown]
  - Tremor [Unknown]
  - Pain [Unknown]
  - Feeling abnormal [Unknown]
  - Anxiety [Unknown]
  - Oropharyngeal pain [Unknown]
  - Serum sickness [Recovered/Resolved]
  - Thrombocytopenia [Recovered/Resolved]
  - Blood creatinine increased [Recovered/Resolved]
  - Red blood cell sedimentation rate increased [Recovered/Resolved]
  - C-reactive protein increased [Recovered/Resolved]
  - Leukopenia [Unknown]
  - Anaemia [Unknown]
